FAERS Safety Report 5671694-8 (Version None)
Quarter: 2008Q2

REPORT INFORMATION
  Report Type: 
  Country: None (occurrence: None)
  Receive Date: 20080229
  Receipt Date: 20071128
  Transmission Date: 20081010
  Serious: No
  Sender: FDA-Public Use
  Company Number: PHEH2007US13324

PATIENT
  Age: 76 Year
  Sex: Male
  Weight: 77.1 kg

DRUGS (17)
  1. EXJADE [Suspect]
     Indication: IRON OVERLOAD
     Dosage: 1250 MG, QAM, ORAL; 500 MG, QAM, ORAL
     Route: 048
     Dates: start: 20071008, end: 20071010
  2. EXJADE [Suspect]
     Indication: IRON OVERLOAD
     Dosage: 1250 MG, QAM, ORAL; 500 MG, QAM, ORAL
     Route: 048
     Dates: start: 20070926, end: 20071024
  3. TRANSFUSIONS (NO INGREDIENTS/SUBSTANCES) [Concomitant]
  4. MICRO-K (POTASSIUM CHLORIDE) [Concomitant]
  5. PLAQUENIL [Concomitant]
  6. CALCITRATE (CALCIUM) [Concomitant]
  7. FOSAMAX [Concomitant]
  8. OXYCODONE HCL [Concomitant]
  9. ZINC (ZINC) [Concomitant]
  10. SEPTRA (SULFAMETHOXAZOLE) [Concomitant]
  11. ACIPHEX [Concomitant]
  12. DETROL [Concomitant]
  13. MULTIVITAMIN [Concomitant]
  14. AMBIEN [Concomitant]
  15. FLOMAX [Concomitant]
  16. PREDNISONE TAB [Concomitant]
  17. VITAMIN D [Concomitant]

REACTIONS (14)
  - ARTHRALGIA [None]
  - ASTHENIA [None]
  - CHILLS [None]
  - DIARRHOEA [None]
  - FATIGUE [None]
  - GAIT DISTURBANCE [None]
  - INFLUENZA LIKE ILLNESS [None]
  - OEDEMA PERIPHERAL [None]
  - POSTOPERATIVE WOUND INFECTION [None]
  - PYREXIA [None]
  - RASH [None]
  - TENDERNESS [None]
  - URINARY INCONTINENCE [None]
  - WEIGHT INCREASED [None]
